FAERS Safety Report 6648885-2 (Version None)
Quarter: 2010Q1

REPORT INFORMATION
  Report Type: 
  Country: None (occurrence: None)
  Receive Date: 20100324
  Receipt Date: 20100311
  Transmission Date: 20100710
  Serious: Yes (Hospitalization)
  Sender: FDA-Public Use
  Company Number: JP-PFIZER INC-2010010199

PATIENT
  Age: 73 Year
  Sex: Male

DRUGS (7)
  1. SEIBULE [Suspect]
     Indication: DIABETES MELLITUS
     Dosage: UNK
     Route: 048
     Dates: start: 20090408, end: 20091226
  2. OLMESARTAN MEDOXOMIL [Concomitant]
     Indication: HYPERTENSION
     Dosage: 20 MG, UNK
     Route: 048
  3. NORVASC [Concomitant]
     Indication: HYPERTENSION
     Dosage: 10 MG, UNK
     Route: 048
  4. LASIX [Concomitant]
     Indication: RENAL FAILURE CHRONIC
     Dosage: 40 MG, UNK
     Route: 048
  5. FERRO-GRADUMET [Concomitant]
     Indication: ANAEMIA
     Dosage: 105 MG, UNK
     Route: 048
     Dates: start: 20090308, end: 20091225
  6. ASPIRIN [Concomitant]
     Indication: CEREBRAL INFARCTION
     Dosage: 100 MG, UNK
     Route: 048
  7. LAFUTIDINE [Concomitant]
     Indication: GASTRITIS
     Dosage: 10 MG, UNK
     Route: 048

REACTIONS (13)
  - ALANINE AMINOTRANSFERASE INCREASED [None]
  - ASPARTATE AMINOTRANSFERASE INCREASED [None]
  - ASTHENIA [None]
  - CHILLS [None]
  - GALLBLADDER ENLARGEMENT [None]
  - GAMMA-GLUTAMYLTRANSFERASE INCREASED [None]
  - HEPATIC FUNCTION ABNORMAL [None]
  - MOVEMENT DISORDER [None]
  - NAUSEA [None]
  - PNEUMONIA KLEBSIELLA [None]
  - PYREXIA [None]
  - SERUM FERRITIN INCREASED [None]
  - VOMITING [None]
